FAERS Safety Report 19874986 (Version 2)
Quarter: 2022Q2

REPORT INFORMATION
  Report Type: Spontaneous
  Country: US (occurrence: US)
  Receive Date: 20210923
  Receipt Date: 20220518
  Transmission Date: 20220720
  Serious: No
  Sender: FDA-Public Use
  Company Number: US-LUPIN PHARMACEUTICALS INC.-2021-17447

PATIENT
  Age: 65 Year
  Sex: Female

DRUGS (6)
  1. OXYCODONE [Suspect]
     Active Substance: OXYCODONE
     Indication: Chest pain
     Dosage: UNK
     Route: 065
  2. OXYCODONE [Suspect]
     Active Substance: OXYCODONE
     Indication: Pain in extremity
  3. PREGABALIN [Suspect]
     Active Substance: PREGABALIN
     Indication: Chest pain
     Dosage: UNK
     Route: 065
  4. PREGABALIN [Suspect]
     Active Substance: PREGABALIN
     Indication: Pain in extremity
  5. HYDROCODONE [Suspect]
     Active Substance: HYDROCODONE
     Indication: Chest pain
     Dosage: UNK
     Route: 065
  6. HYDROCODONE [Suspect]
     Active Substance: HYDROCODONE
     Indication: Pain in extremity

REACTIONS (3)
  - Sedation [Unknown]
  - Lymphoedema [Unknown]
  - Pain [Unknown]
